FAERS Safety Report 15015231 (Version 1)
Quarter: 2018Q2

REPORT INFORMATION
  Report Type: Spontaneous
  Country: DE (occurrence: DE)
  Receive Date: 20180615
  Receipt Date: 20180615
  Transmission Date: 20180711
  Serious: Yes (Hospitalization)
  Sender: FDA-Public Use
  Company Number: DE-TEVA-2018-DE-907664

PATIENT
  Age: 62 Year
  Sex: Male

DRUGS (15)
  1. CLOPIDOGREL [Suspect]
     Active Substance: CLOPIDOGREL BISULFATE
     Dosage: 1-0-0-0
     Route: 065
  2. METOPROLOL. [Concomitant]
     Active Substance: METOPROLOL
     Dosage: 1-0-1-0
     Route: 065
  3. MACROGOL AL 13,7 G [Concomitant]
     Dosage: 1-0-0-0
     Route: 065
  4. TORASEMID [Concomitant]
     Active Substance: TORSEMIDE
     Dosage: 2-1-0-0
  5. OXYCODON [Concomitant]
     Active Substance: OXYCODONE
     Dosage: 1-0-1-0
  6. PANTOPRAZOL [Concomitant]
     Active Substance: PANTOPRAZOLE SODIUM
     Dosage: 1-0-1-0
  7. PREGABALIN. [Concomitant]
     Active Substance: PREGABALIN
     Dosage: 1-0-1-0
     Route: 065
  8. RAMIPRIL. [Concomitant]
     Active Substance: RAMIPRIL
     Dosage: 1-0-0-0
  9. PRAMIPEXOL [Concomitant]
     Active Substance: PRAMIPEXOLE
     Dosage: 1-0-1-0
  10. METAMIZOL [Concomitant]
     Active Substance: METAMIZOLE SODIUM
     Dosage: 1-1-1-1
  11. INSULIN DETEMIR [Concomitant]
     Active Substance: INSULIN DETEMIR
     Dosage: 10 IE, 0-0-1-0
     Route: 065
  12. SIMVASTATIN. [Concomitant]
     Active Substance: SIMVASTATIN
     Dosage: 0-0-1-0
  13. INSULIN HUMAN [Concomitant]
     Active Substance: INSULIN HUMAN
     Dosage: BY SCHEME
     Route: 065
  14. DULOXETIN [Concomitant]
     Active Substance: DULOXETINE
     Dosage: 1-0-0-0
     Route: 065
  15. KALINOR-RETARD P 600MG [Concomitant]
     Dosage: 1-0-1-0

REACTIONS (6)
  - Dyspnoea [Unknown]
  - Vomiting [Unknown]
  - Pain [Unknown]
  - Nausea [Unknown]
  - Drug prescribing error [Unknown]
  - Constipation [Unknown]
